FAERS Safety Report 4825887-X (Version None)
Quarter: 2005Q4

REPORT INFORMATION
  Report Type: 
  Country: None (occurrence: None)
  Receive Date: 20051111
  Receipt Date: 20051101
  Transmission Date: 20060501
  Serious: Yes (Hospitalization)
  Sender: FDA-Public Use
  Company Number: US-JNJFOC-20051101252

PATIENT
  Age: 38 Year
  Sex: Female
  Weight: 55.34 kg

DRUGS (2)
  1. TOPAMAX [Suspect]
     Indication: MIGRAINE PROPHYLAXIS
     Route: 048
  2. ALLEGRA [Concomitant]

REACTIONS (2)
  - HYSTERECTOMY [None]
  - PARAESTHESIA [None]
